FAERS Safety Report 14351085 (Version 1)
Quarter: 2018Q1

REPORT INFORMATION
  Report Type: Spontaneous
  Country: US (occurrence: US)
  Receive Date: 20180103
  Receipt Date: 20180103
  Transmission Date: 20180509
  Serious: Yes (Other)
  Sender: FDA-Public Use
  Company Number: None

PATIENT
  Age: 55 Year
  Sex: Female

DRUGS (1)
  1. IBRANCE [Suspect]
     Active Substance: PALBOCICLIB
     Indication: PRODUCT USED FOR UNKNOWN INDICATION
     Dosage: 125MG ONCE DAILY FOR 21 DAYS OF A 28 DAY CYCLE BY MOUTH
     Route: 048
     Dates: start: 20170719, end: 20180102

REACTIONS (2)
  - Disease progression [None]
  - Drug ineffective [None]

NARRATIVE: CASE EVENT DATE: 20180102
